FAERS Safety Report 9617296 (Version 1)
Quarter: 2013Q4

REPORT INFORMATION
  Report Type: Spontaneous
  Country: SI (occurrence: SI)
  Receive Date: 20131011
  Receipt Date: 20131011
  Transmission Date: 20140711
  Serious: Yes (Hospitalization, Other)
  Sender: FDA-Public Use
  Company Number: PHHY2013SI111675

PATIENT
  Age: 49 Year
  Sex: Female

DRUGS (1)
  1. LEKADOL [Suspect]
     Dosage: 30 G

REACTIONS (7)
  - Suicide attempt [Unknown]
  - Toxicity to various agents [Recovering/Resolving]
  - Vomiting [Unknown]
  - Abdominal pain upper [Unknown]
  - Acute hepatic failure [Unknown]
  - Hepatic enzyme increased [Unknown]
  - Transaminases increased [Unknown]
